FAERS Safety Report 7428501-2 (Version None)
Quarter: 2011Q2

REPORT INFORMATION
  Report Type: 
  Country: None (occurrence: None)
  Receive Date: 20110421
  Receipt Date: 20110408
  Transmission Date: 20111010
  Serious: Yes (Other)
  Sender: FDA-Public Use
  Company Number: PHHY2011US33119

PATIENT
  Sex: Female

DRUGS (15)
  1. PRILOSEC [Concomitant]
     Dosage: 40 MG, UNK
  2. GENTEAL PM LUBRICANT EYE OINTMENT [Suspect]
  3. GENTEAL GEL [Suspect]
  4. BELLADONNA TINCTURE [Suspect]
     Indication: IRRITABLE BOWEL SYNDROME
     Dosage: 20 DRP, QID
  5. SYNTHROID [Concomitant]
     Dosage: 0.088 MG, QD
  6. TOPAMAX [Concomitant]
     Dosage: 50 MG, UNK
  7. TRAZODONE HCL [Concomitant]
     Dosage: 300 MG, UNK
  8. DONNATAL [Suspect]
     Indication: IRRITABLE BOWEL SYNDROME
     Dosage: 1 DF, QID
     Route: 048
  9. NEURONTIN [Concomitant]
     Dosage: 300 MG, QID
  10. ZYRTEC [Concomitant]
     Dosage: 10 MG, UNK
  11. THIAZIDES [Concomitant]
  12. SUDAFED 12 HOUR [Concomitant]
  13. REGLAN [Concomitant]
     Dosage: 5 MG, UNK
  14. MIDRIN [Concomitant]
  15. VERAPAMIL [Concomitant]
     Dosage: 120 MG, UNK

REACTIONS (2)
  - CORNEAL DISORDER [None]
  - DRY EYE [None]
